FAERS Safety Report 7506585 (Version 4)
Quarter: 2019Q3

REPORT INFORMATION
  Report Type: Report from Study
  Country: US (occurrence: US)
  Receive Date: 20100728
  Receipt Date: 20190708
  Transmission Date: 20191005
  Serious: Yes (Hospitalization, Other)
  Sender: FDA-Public Use
  Company Number: US-MILLENNIUM PHARMACEUTICALS, INC.-2010-03762

PATIENT
  Age: 71 Year
  Sex: Male
  Weight: 95 kg

DRUGS (3)
  1. ALKERAN [Suspect]
     Active Substance: MELPHALAN
     Indication: PLASMA CELL MYELOMA
     Dosage: 18 MILLIGRAM, QD
     Route: 048
     Dates: start: 20100316, end: 20100319
  2. BORTEZOMIB. [Suspect]
     Active Substance: BORTEZOMIB
     Indication: PLASMA CELL MYELOMA
     Dosage: 2 MILLIGRAM
     Route: 058
     Dates: start: 20100318, end: 20100408
  3. PREDNISONE. [Suspect]
     Active Substance: PREDNISONE
     Indication: PLASMA CELL MYELOMA
     Dosage: 120 MILLIGRAM, QD
     Route: 048
     Dates: start: 20100316, end: 20100319

REACTIONS (5)
  - Gastrointestinal haemorrhage [Recovered/Resolved]
  - Hypotension [Recovered/Resolved]
  - Hypertrophic cardiomyopathy [Recovered/Resolved]
  - Anaemia [Recovered/Resolved]
  - Dizziness [Recovered/Resolved]

NARRATIVE: CASE EVENT DATE: 20100331
